FAERS Safety Report 5142807-1 (Version None)
Quarter: 2006Q4

REPORT INFORMATION
  Report Type: 
  Country: None (occurrence: None)
  Receive Date: 20061102
  Receipt Date: 20060920
  Transmission Date: 20070319
  Serious: Yes (Other)
  Sender: FDA-Public Use
  Company Number: JP-MERCK-0609USA05742

PATIENT
  Age: 40 Year
  Sex: Male

DRUGS (7)
  1. PRIMAXIN [Suspect]
     Indication: INFECTION
     Route: 041
     Dates: start: 20000313
  2. ERYTHROMYCIN [Suspect]
     Indication: INFECTION
     Route: 065
     Dates: start: 20000313
  3. [THERAPY UNSPECIFIED] [Concomitant]
     Indication: INTERSTITIAL LUNG DISEASE
     Route: 065
     Dates: start: 20000301
  4. AMANTADINE HYDROCHLORIDE [Concomitant]
     Indication: INFECTION
     Route: 048
     Dates: start: 20000313
  5. GLOBULIN, IMMUNE [Concomitant]
     Route: 041
     Dates: start: 20000313
  6. [THERAPY UNSPECIFIED] [Concomitant]
     Route: 065
     Dates: start: 20000313
  7. ULINASTATIN [Concomitant]
     Route: 065
     Dates: start: 20000313, end: 20000315

REACTIONS (3)
  - RENAL IMPAIRMENT [None]
  - SHOCK [None]
  - VENTRICULAR TACHYCARDIA [None]
